FAERS Safety Report 5954743-9 (Version None)
Quarter: 2008Q4

REPORT INFORMATION
  Report Type: 
  Country: None (occurrence: None)
  Receive Date: 20081112
  Receipt Date: 20081031
  Transmission Date: 20090506
  Serious: Yes (Other)
  Sender: FDA-Public Use
  Company Number: GXKR2008IL10414

PATIENT
  Sex: Female
  Weight: 3 kg

DRUGS (1)
  1. PAROXETINE HCL [Suspect]
     Dosage: MATERNAL DOSE: 20 MG/DAY, TRANSPLACENTAL
     Route: 064

REACTIONS (3)
  - ELECTROCARDIOGRAM QT PROLONGED [None]
  - MATERNAL DRUGS AFFECTING FOETUS [None]
  - PREMATURE BABY [None]
